FAERS Safety Report 21978191 (Version 1)
Quarter: 2023Q1

REPORT INFORMATION
  Report Type: Spontaneous
  Country: US (occurrence: US)
  Receive Date: 20230210
  Receipt Date: 20230210
  Transmission Date: 20230417
  Serious: Yes (Other)
  Sender: FDA-Public Use
  Company Number: US-PFIZER INC-202300059573

PATIENT

DRUGS (2)
  1. TOBRAMYCIN [Suspect]
     Active Substance: TOBRAMYCIN
     Dosage: UNK
  2. SEROSTIM [Concomitant]
     Active Substance: SOMATROPIN
     Dosage: UNK

REACTIONS (3)
  - Breast cancer [Unknown]
  - Feeling abnormal [Unknown]
  - Hepatic enzyme abnormal [Unknown]
